FAERS Safety Report 9244455 (Version 3)
Quarter: 2013Q3

REPORT INFORMATION
  Report Type: Spontaneous
  Country: GR (occurrence: GR)
  Receive Date: 20130422
  Receipt Date: 20130927
  Transmission Date: 20140515
  Serious: Yes (Hospitalization)
  Sender: FDA-Public Use
  Company Number: GR-PFIZER INC-2013124676

PATIENT
  Age: 81 Year
  Sex: Female

DRUGS (4)
  1. CISPLATIN [Suspect]
     Indication: CHEMOTHERAPY
     Dosage: UNK
  2. TAMOXIFEN CITRATE [Suspect]
     Indication: CHEMOTHERAPY
     Dosage: 20 MG/D
  3. TAMOXIFEN CITRATE [Suspect]
     Indication: BREAST CANCER STAGE II
  4. PACLITAXEL [Suspect]
     Indication: CHEMOTHERAPY
     Dosage: UNK

REACTIONS (2)
  - Second primary malignancy [Recovered/Resolved]
  - Sarcoma uterus [Recovered/Resolved]
